FAERS Safety Report 4734765-6 (Version None)
Quarter: 2005Q3

REPORT INFORMATION
  Report Type: 
  Country: None (occurrence: None)
  Receive Date: 20050804
  Receipt Date: 20050719
  Transmission Date: 20060218
  Serious: Yes (Hospitalization)
  Sender: FDA-Public Use
  Company Number: FR-GLAXOSMITHKLINE-B0388218A

PATIENT
  Age: 76 Year
  Sex: Female
  Weight: 70 kg

DRUGS (16)
  1. ZOVIRAX [Suspect]
     Indication: HEPATIC ENCEPHALOPATHY
     Dosage: 700MG THREE TIMES PER DAY
     Route: 042
     Dates: start: 20050513, end: 20050516
  2. AUGMENTIN '125' [Suspect]
     Dosage: 1G THREE TIMES PER DAY
     Route: 048
     Dates: start: 20050513, end: 20050516
  3. OFLOCET [Suspect]
     Dosage: 200MG TWICE PER DAY
     Route: 048
     Dates: start: 20050513, end: 20050516
  4. DIAMICRON [Suspect]
     Dosage: 2UNIT PER DAY
     Route: 048
     Dates: end: 20050516
  5. TAHOR [Suspect]
     Dosage: 1UNIT PER DAY
     Route: 048
     Dates: end: 20050516
  6. DEPAKENE [Suspect]
     Route: 048
     Dates: start: 20050613, end: 20050616
  7. ANTALGIC [Concomitant]
     Dates: start: 20050509
  8. PREVISCAN [Concomitant]
     Route: 048
  9. OMEPRAZOLE [Concomitant]
     Dosage: 20MG PER DAY
  10. MEDIATOR [Concomitant]
     Dosage: 150MG IN THE MORNING
     Dates: end: 20050516
  11. DIGOXIN [Concomitant]
     Dosage: .125MG ALTERNATE DAYS
     Route: 048
     Dates: end: 20050516
  12. LEVOTHYROX [Concomitant]
     Dosage: 100MG IN THE MORNING
  13. BIPROFENID [Concomitant]
     Dosage: .5UNIT TWICE PER DAY
     Dates: start: 20050509, end: 20050512
  14. DIANTALVIC [Concomitant]
     Dosage: 2CAP THREE TIMES PER DAY
     Route: 048
     Dates: start: 20050509, end: 20050513
  15. MYOLASTAN [Concomitant]
     Route: 048
     Dates: end: 20050511
  16. NEURONTIN [Concomitant]
     Route: 048
     Dates: end: 20050513

REACTIONS (5)
  - CHOLESTASIS [None]
  - CYTOLYTIC HEPATITIS [None]
  - HEPATIC ENZYME INCREASED [None]
  - HYPERBILIRUBINAEMIA [None]
  - LIPASE INCREASED [None]
